FAERS Safety Report 8908532 (Version 2)
Quarter: 2012Q4

REPORT INFORMATION
  Report Type: 
  Country: BE (occurrence: BE)
  Receive Date: 20121114
  Receipt Date: 20121210
  Transmission Date: 20130627
  Serious: Yes (Hospitalization)
  Sender: FDA-Public Use
  Company Number: BE-VERTEX PHARMACEUTICAL INC.-2012-024078

PATIENT
  Age: 23 Year
  Sex: Female
  Weight: 72 kg

DRUGS (13)
  1. VX-770 [Suspect]
     Indication: CYSTIC FIBROSIS
     Dosage: UNK
     Dates: start: 20120921
  2. CREON [Concomitant]
  3. VITAMINS [Concomitant]
  4. ACETYLCYSTEIN [Concomitant]
  5. SALBUTAMOL [Concomitant]
  6. DEOXYRIBONUCLEASE HUMAN [Concomitant]
  7. COLISTINE [Concomitant]
  8. FLUTICASONE W/SALMETEROL [Concomitant]
  9. CETIRIZINE [Concomitant]
  10. MONTELUKAST [Concomitant]
  11. AVAMYS [Concomitant]
  12. AZITHROMYCIN [Concomitant]
  13. CEFADROXIL [Concomitant]

REACTIONS (1)
  - Distal ileal obstruction syndrome [Recovered/Resolved]
